FAERS Safety Report 4406306-4 (Version None)
Quarter: 2004Q3

REPORT INFORMATION
  Report Type: 
  Country: None (occurrence: None)
  Receive Date: 20040723
  Receipt Date: 20030616
  Transmission Date: 20050211
  Serious: No
  Sender: FDA-Public Use
  Company Number: US-GLAXOSMITHKLINE-A0412465A

PATIENT
  Age: 74 Year
  Sex: Female

DRUGS (9)
  1. AVANDIA [Suspect]
     Dosage: 4MG PER DAY
     Route: 048
     Dates: start: 20030101
  2. GLUCOTROL XL [Concomitant]
  3. SYNTHROID [Concomitant]
  4. DYAZIDE [Concomitant]
     Dosage: 1CAP ALTERNATE DAYS
  5. CARDIZEM CD [Concomitant]
     Dosage: 240MG PER DAY
  6. NITROGLYCERIN [Concomitant]
  7. UNKNOWN VITAMINS [Concomitant]
  8. MSM [Concomitant]
  9. GLUCOSAMINE + CHONDROITIN [Concomitant]

REACTIONS (3)
  - BACK PAIN [None]
  - PAIN [None]
  - PRURITUS [None]
